FAERS Safety Report 9513648 (Version 1)
Quarter: 2013Q3

REPORT INFORMATION
  Report Type: Spontaneous
  Country: IT (occurrence: IT)
  Receive Date: 20130910
  Receipt Date: 20130910
  Transmission Date: 20140515
  Serious: Yes (Hospitalization)
  Sender: FDA-Public Use
  Company Number: IT-GLAXOSMITHKLINE-B0921605A

PATIENT
  Age: 42 Year
  Sex: Female

DRUGS (1)
  1. SEREUPIN [Suspect]
     Indication: ANXIETY
     Dosage: 17TAB PER DAY
     Dates: start: 20130522

REACTIONS (2)
  - Drug abuse [Recovered/Resolved]
  - Sopor [Recovered/Resolved]
